FAERS Safety Report 17847113 (Version 4)
Quarter: 2020Q3

REPORT INFORMATION
  Report Type: Spontaneous
  Country: US (occurrence: US)
  Receive Date: 20200601
  Receipt Date: 20200728
  Transmission Date: 20201103
  Serious: Yes (Other)
  Sender: FDA-Public Use
  Company Number: US-SA-2020SA138230

PATIENT

DRUGS (2)
  1. DUPIXENT [Suspect]
     Active Substance: DUPILUMAB
     Dosage: 200 MG EVERY 3?4 WEEKS
     Route: 058
     Dates: start: 2020
  2. DUPIXENT [Suspect]
     Active Substance: DUPILUMAB
     Indication: DERMATITIS ATOPIC
     Dosage: 400 MG, 1X
     Route: 058
     Dates: start: 20200310, end: 20200310

REACTIONS (8)
  - Blood immunoglobulin M increased [Unknown]
  - Pneumonia mycoplasmal [Unknown]
  - Blood immunoglobulin G increased [Unknown]
  - Paraesthesia [Unknown]
  - Product use issue [Unknown]
  - Headache [Recovered/Resolved]
  - Optic neuritis [Recovered/Resolved]
  - Off label use [Unknown]

NARRATIVE: CASE EVENT DATE: 2020
